FAERS Safety Report 21436661 (Version 2)
Quarter: 2022Q4

REPORT INFORMATION
  Report Type: Report from Study
  Country: US (occurrence: US)
  Receive Date: 20221010
  Receipt Date: 20221116
  Transmission Date: 20230113
  Serious: Yes (Hospitalization, Other)
  Sender: FDA-Public Use
  Company Number: US-GILEAD-2022-0600435

PATIENT
  Sex: Female

DRUGS (42)
  1. AZTREONAM LYSINE [Suspect]
     Active Substance: AZTREONAM LYSINE
     Indication: Cystic fibrosis
     Dosage: INHALE 1 VIAL (75 MG) VIA ALTERA NEBULIZER THREE TIMES A DAY, ALTERNATING EVERY OTHER MONTH
     Route: 055
  2. HUMALOG [Concomitant]
     Active Substance: INSULIN LISPRO
  3. CREON [Concomitant]
     Active Substance: PANCRELIPASE AMYLASE\PANCRELIPASE LIPASE\PANCRELIPASE PROTEASE
  4. ZYRTEC [Concomitant]
     Active Substance: CETIRIZINE HYDROCHLORIDE
  5. PREMARIN [Concomitant]
     Active Substance: ESTROGENS, CONJUGATED
  6. AZITHROMYCIN [Concomitant]
     Active Substance: AZITHROMYCIN
  7. LEVALBUTEROL HYDROCHLORIDE [Concomitant]
     Active Substance: LEVALBUTEROL HYDROCHLORIDE
  8. CYANOCOBALAMIN [Concomitant]
     Active Substance: CYANOCOBALAMIN
  9. LEVEMIR [Concomitant]
     Active Substance: INSULIN DETEMIR
  10. LAMICTAL [Concomitant]
     Active Substance: LAMOTRIGINE
  11. SYMBICORT [Concomitant]
     Active Substance: BUDESONIDE\FORMOTEROL FUMARATE DIHYDRATE
  12. ALBUTEROL SULFATE [Concomitant]
     Active Substance: ALBUTEROL SULFATE
  13. DIAZEPAM [Concomitant]
     Active Substance: DIAZEPAM
  14. CARVEDILOL [Concomitant]
     Active Substance: CARVEDILOL
  15. SCOPOLAMINE HYDROCHLORIDE [Concomitant]
     Active Substance: SCOPOLAMINE HYDROCHLORIDE
  16. PANTOPRAZOLE SODIUM [Concomitant]
     Active Substance: PANTOPRAZOLE SODIUM
  17. DICYCLOMINE HYDROCHLORIDE [Concomitant]
     Active Substance: DICYCLOMINE HYDROCHLORIDE
  18. SPIRIVA [Concomitant]
     Active Substance: TIOTROPIUM BROMIDE MONOHYDRATE
  19. MONTELUKAST SODIUM [Concomitant]
     Active Substance: MONTELUKAST SODIUM
  20. LEVETIRACETAM [Concomitant]
     Active Substance: LEVETIRACETAM
  21. FENOFIBRATE [Concomitant]
     Active Substance: FENOFIBRATE
  22. DEXXON [Concomitant]
  23. AMLODIPINE BESYLATE [Concomitant]
     Active Substance: AMLODIPINE BESYLATE
  24. LEVOCETIRIZINE DIHYDROCHLORIDE [Concomitant]
     Active Substance: LEVOCETIRIZINE DIHYDROCHLORIDE
  25. RIBOFLAVIN [Concomitant]
     Active Substance: RIBOFLAVIN
  26. LOSARTAN POTASSIUM [Concomitant]
     Active Substance: LOSARTAN POTASSIUM
  27. MECLIZINE HYDROCHLORIDE [Concomitant]
     Active Substance: MECLIZINE HYDROCHLORIDE
  28. CHOLINE [Concomitant]
     Active Substance: CHOLINE
  29. LASIX [Concomitant]
     Active Substance: FUROSEMIDE
  30. SANCUSO [Concomitant]
     Active Substance: GRANISETRON
  31. HYOSCYAMINE SULFATE [Concomitant]
     Active Substance: HYOSCYAMINE SULFATE
  32. EPIPEN [Concomitant]
     Active Substance: EPINEPHRINE
  33. GABAPENTIN [Concomitant]
     Active Substance: GABAPENTIN
  34. VITAMIN D NOS [Concomitant]
     Active Substance: VITAMIN D NOS
  35. ADDERALL [Concomitant]
     Active Substance: AMPHETAMINE ASPARTATE\AMPHETAMINE SULFATE\DEXTROAMPHETAMINE SACCHARATE\DEXTROAMPHETAMINE SULFATE
  36. HYDROXYCHLOROQUINE SULFATE [Concomitant]
     Active Substance: HYDROXYCHLOROQUINE SULFATE
  37. NUVIGIL [Concomitant]
     Active Substance: ARMODAFINIL
  38. XIFAXAN [Concomitant]
     Active Substance: RIFAXIMIN
  39. NURTEC ODT [Concomitant]
     Active Substance: RIMEGEPANT SULFATE
  40. IRON [Concomitant]
     Active Substance: IRON
  41. TOBRAMYCIN [Concomitant]
     Active Substance: TOBRAMYCIN
  42. PULMOZYME [Concomitant]
     Active Substance: DORNASE ALFA

REACTIONS (12)
  - Pneumonia [Unknown]
  - Impaired gastric emptying [Not Recovered/Not Resolved]
  - Gastrointestinal tube removal [Recovered/Resolved]
  - Biliary tract disorder [Unknown]
  - Pain [Not Recovered/Not Resolved]
  - Vomiting [Unknown]
  - Dry mouth [Unknown]
  - Glossodynia [Unknown]
  - Tongue disorder [Unknown]
  - Oropharyngeal pain [Unknown]
  - Pyrexia [Unknown]
  - Intentional dose omission [Unknown]

NARRATIVE: CASE EVENT DATE: 20220101
